FAERS Safety Report 23213151 (Version 1)
Quarter: 2023Q4

REPORT INFORMATION
  Report Type: Spontaneous
  Country: US (occurrence: US)
  Receive Date: 20231121
  Receipt Date: 20231121
  Transmission Date: 20240110
  Serious: No
  Sender: FDA-Public Use
  Company Number: US-ABBVIE-2235331US

PATIENT
  Sex: Female

DRUGS (4)
  1. QULIPTA [Suspect]
     Active Substance: ATOGEPANT
     Indication: Product used for unknown indication
     Dosage: 10 MG
     Route: 048
  2. Pfizer/BioNTech covid-vaccine [Concomitant]
     Indication: COVID-19 immunisation
     Dosage: ONE IN ONCE FIRST DOSE
     Route: 030
     Dates: start: 20210727, end: 20210727
  3. Pfizer/BioNTech covid-vaccine [Concomitant]
     Indication: COVID-19 immunisation
     Dosage: ONE IN ONCE 2ND DOSE
     Route: 030
     Dates: start: 20220411, end: 20220411
  4. Pfizer/BioNTech covid-vaccine [Concomitant]
     Indication: COVID-19 immunisation
     Dosage: ONE IN ONCE 3RD DOSE
     Route: 030
     Dates: start: 20220914, end: 20220914

REACTIONS (2)
  - Headache [Unknown]
  - Drug ineffective [Unknown]
